FAERS Safety Report 23142962 (Version 2)
Quarter: 2025Q3

REPORT INFORMATION
  Report Type: Spontaneous
  Country: US (occurrence: US)
  Receive Date: 20231103
  Receipt Date: 20250723
  Transmission Date: 20251021
  Serious: No
  Sender: SUNOVION
  Company Number: US-MYOVANT SCIENCES GMBH-2023MYSCI0900210

PATIENT

DRUGS (2)
  1. ORGOVYX [Suspect]
     Active Substance: RELUGOLIX
     Indication: Prostate cancer
     Route: 048
     Dates: start: 20220830
  2. ORGOVYX [Suspect]
     Active Substance: RELUGOLIX
     Dosage: 120 MILLIGRAM, QD
     Route: 048
     Dates: start: 20220831, end: 20230903

REACTIONS (1)
  - Therapy interrupted [Unknown]

NARRATIVE: CASE EVENT DATE: 20230904
